FAERS Safety Report 18356868 (Version 1)
Quarter: 2020Q4

REPORT INFORMATION
  Report Type: Spontaneous
  Country: CA (occurrence: CA)
  Receive Date: 20201007
  Receipt Date: 20201007
  Transmission Date: 20210114
  Serious: Yes (Other)
  Sender: FDA-Public Use
  Company Number: CA-JNJFOC-20200953228

PATIENT
  Age: 25 Year
  Sex: Female

DRUGS (4)
  1. REMICADE [Suspect]
     Active Substance: INFLIXIMAB
     Indication: COLITIS ULCERATIVE
     Route: 042
  2. METHOTREXATE. [Concomitant]
     Active Substance: METHOTREXATE
  3. MEZAVANT [Concomitant]
     Active Substance: MESALAMINE
  4. MEZAVANT [Concomitant]
     Active Substance: MESALAMINE

REACTIONS (9)
  - Heart rate decreased [Recovered/Resolved]
  - Condition aggravated [Recovered/Resolved]
  - Off label use [Recovered/Resolved]
  - Faecal calprotectin increased [Recovered/Resolved]
  - Inappropriate schedule of product administration [Recovered/Resolved]
  - Intentional product use issue [Recovered/Resolved]
  - Drug level above therapeutic [Recovered/Resolved]
  - Weight increased [Recovered/Resolved]
  - Drug level below therapeutic [Recovered/Resolved]
